FAERS Safety Report 9372215 (Version 1)
Quarter: 2013Q2

REPORT INFORMATION
  Report Type: Report from Study
  Country: US (occurrence: US)
  Receive Date: 20130627
  Receipt Date: 20130627
  Transmission Date: 20140414
  Serious: Yes (Death)
  Sender: FDA-Public Use
  Company Number: US-MYLANLABS-2012S1017162

PATIENT
  Age: 79 Year
  Sex: Female

DRUGS (3)
  1. CLOZAPINE TABLETS [Suspect]
     Indication: PARKINSON^S DISEASE
     Route: 048
     Dates: start: 20120726, end: 201207
  2. CLOZAPINE TABLETS [Suspect]
     Indication: DEMENTIA
     Route: 048
     Dates: start: 20120726, end: 201207
  3. CLOZAPINE TABLETS [Suspect]
     Indication: HALLUCINATION
     Route: 048
     Dates: start: 20120726, end: 201207

REACTIONS (2)
  - Hip fracture [Fatal]
  - Dizziness [Recovered/Resolved]
